FAERS Safety Report 10424544 (Version 2)
Quarter: 2014Q3

REPORT INFORMATION
  Report Type: Spontaneous
  Country: AR (occurrence: AR)
  Receive Date: 20140902
  Receipt Date: 20140922
  Transmission Date: 20150326
  Serious: Yes (Hospitalization, Other)
  Sender: FDA-Public Use
  Company Number: PHHY2014AR109260

PATIENT
  Age: 49 Year
  Sex: Female

DRUGS (1)
  1. GILENYA [Suspect]
     Active Substance: FINGOLIMOD HYDROCHLORIDE
     Indication: MULTIPLE SCLEROSIS
     Dates: start: 201308, end: 20140815

REACTIONS (6)
  - Convulsion [Recovering/Resolving]
  - Pyrexia [Recovering/Resolving]
  - Encephalopathy [Recovering/Resolving]
  - Urinary tract infection [Recovering/Resolving]
  - Altered state of consciousness [Recovering/Resolving]
  - Bacterial diarrhoea [Recovered/Resolved]

NARRATIVE: CASE EVENT DATE: 20140825
